FAERS Safety Report 20147152 (Version 2)
Quarter: 2021Q4

REPORT INFORMATION
  Report Type: Spontaneous
  Country: US (occurrence: US)
  Receive Date: 20211203
  Receipt Date: 20211222
  Transmission Date: 20220303
  Serious: No
  Sender: FDA-Public Use
  Company Number: US-SA-SAC20211125000267

PATIENT
  Age: 56 Year
  Sex: Female

DRUGS (1)
  1. DUPIXENT [Suspect]
     Active Substance: DUPILUMAB
     Indication: Dermatitis atopic
     Dosage: 300 MG, OTHER
     Route: 058
     Dates: start: 202109

REACTIONS (4)
  - Ocular hyperaemia [Unknown]
  - Lacrimation increased [Unknown]
  - Eye pruritus [Unknown]
  - Oral herpes [Unknown]

NARRATIVE: CASE EVENT DATE: 20211118
